FAERS Safety Report 9067306 (Version 1)
Quarter: 2013Q1

REPORT INFORMATION
  Report Type: Spontaneous
  Country: US (occurrence: US)
  Receive Date: 20130214
  Receipt Date: 20130214
  Transmission Date: 20140127
  Serious: Yes (Other)
  Sender: FDA-Public Use
  Company Number: US-BAYER-2013-007398

PATIENT
  Sex: 0

DRUGS (1)
  1. ALKA-SELTZER PLUS COLD AND SINUS [Suspect]
     Dosage: 1 DF, UNK
     Route: 048

REACTIONS (1)
  - Choking [None]
